FAERS Safety Report 8079476-7 (Version None)
Quarter: 2012Q1

REPORT INFORMATION
  Report Type: 
  Country: None (occurrence: None)
  Receive Date: 20120128
  Receipt Date: 20110825
  Transmission Date: 20120608
  Serious: No
  Sender: FDA-Public Use
  Company Number: US-ABBOTT-11P-163-0849450-00

PATIENT
  Age: 42 Year
  Sex: Male

DRUGS (4)
  1. HUMIRA [Suspect]
     Indication: PSORIASIS
     Dates: end: 20110803
  2. CENTRUM [Concomitant]
     Indication: PRODUCT USED FOR UNKNOWN INDICATION
     Dosage: MEN'S HEALTH, PILL
     Route: 048
  3. DIETARY SUPPLEMENT [Concomitant]
     Indication: PRODUCT USED FOR UNKNOWN INDICATION
  4. ABILIFY [Concomitant]
     Indication: DEPRESSION
     Route: 048
     Dates: start: 20100201

REACTIONS (2)
  - BLOOD TRIGLYCERIDES INCREASED [None]
  - WEIGHT INCREASED [None]
